FAERS Safety Report 8989038 (Version 1)
Quarter: 2012Q4

REPORT INFORMATION
  Report Type: 
  Country: US (occurrence: US)
  Receive Date: 20121228
  Receipt Date: 20121228
  Transmission Date: 20130627
  Serious: Yes (Other)
  Sender: FDA-Public Use
  Company Number: US-BAYER-2012-134666

PATIENT
  Age: 64 Year
  Sex: Male
  Weight: 95.24 kg

DRUGS (3)
  1. ALEVE-D SINUS + COLD [Suspect]
     Indication: SINUS PRESSURE
     Dosage: 2 DF, BID
  2. ALEVE CAPLET/TABLET,MIDOL EXTENDED RELIEF CAPLET [Suspect]
     Indication: SINUS PRESSURE
     Dosage: 2 DF, BID
     Route: 048
  3. BETA BLOCKING AGENTS [Concomitant]

REACTIONS (2)
  - Prostatitis [None]
  - Overdose [None]
